FAERS Safety Report 13896819 (Version 1)
Quarter: 2017Q3

REPORT INFORMATION
  Report Type: Spontaneous
  Country: US (occurrence: US)
  Receive Date: 20170822
  Receipt Date: 20170822
  Transmission Date: 20171127
  Serious: Yes (Hospitalization)
  Sender: FDA-Public Use
  Company Number: None

PATIENT
  Age: 54 Year
  Sex: Male
  Weight: 114.3 kg

DRUGS (1)
  1. CEFAZOLIN [Suspect]
     Active Substance: CEFAZOLIN
     Indication: CELLULITIS
     Route: 040
     Dates: start: 20170810, end: 20170818

REACTIONS (6)
  - Peripheral swelling [None]
  - Pruritus [None]
  - Epistaxis [None]
  - Oral candidiasis [None]
  - Pain in extremity [None]
  - Petechiae [None]

NARRATIVE: CASE EVENT DATE: 20170819
